FAERS Safety Report 8538627-8 (Version None)
Quarter: 2012Q3

REPORT INFORMATION
  Report Type: 
  Country: None (occurrence: None)
  Receive Date: 20120718
  Receipt Date: 20120718
  Transmission Date: 20120928
  Serious: Yes (Life-Threatening, Hospitalization, Other)
  Sender: FDA-Public Use
  Company Number: None

PATIENT
  Age: 51 Year
  Sex: Male
  Weight: 87.5442 kg

DRUGS (1)
  1. ETODOLAC [Suspect]
     Dosage: 400  ORAL
     Route: 048

REACTIONS (15)
  - HICCUPS [None]
  - OEDEMA PERIPHERAL [None]
  - BODY FAT DISORDER [None]
  - NIGHT SWEATS [None]
  - AMNESIA [None]
  - RASH [None]
  - SWELLING FACE [None]
  - CANDIDIASIS [None]
  - MUSCLE ATROPHY [None]
  - CD4 LYMPHOCYTES DECREASED [None]
  - MALAISE [None]
  - BRONCHITIS [None]
  - ABNORMAL BEHAVIOUR [None]
  - PNEUMONIA [None]
  - MOOD ALTERED [None]
